FAERS Safety Report 21110509 (Version 1)
Quarter: 2022Q3

REPORT INFORMATION
  Report Type: Spontaneous
  Country: US (occurrence: None)
  Receive Date: 20220720
  Receipt Date: 20220720
  Transmission Date: 20221027
  Serious: Yes (Death)
  Sender: FDA-Public Use
  Company Number: None

PATIENT
  Age: 49 Year
  Sex: Male

DRUGS (1)
  1. VOTRIENT [Suspect]
     Active Substance: PAZOPANIB HYDROCHLORIDE
     Dosage: TAKE 3 TABLETS (600,    DAILY ORAL
     Route: 048
     Dates: start: 20200312, end: 20220615

REACTIONS (1)
  - Death [None]

NARRATIVE: CASE EVENT DATE: 20220630
